FAERS Safety Report 26198210 (Version 1)
Quarter: 2025Q4

REPORT INFORMATION
  Report Type: Spontaneous
  Country: EU (occurrence: EU)
  Receive Date: 20251224
  Receipt Date: 20251224
  Transmission Date: 20260118
  Serious: Yes (Hospitalization, Other)
  Sender: PFIZER
  Company Number: EU-GLAXOSMITHKLINE-FR2020GSK170826

PATIENT
  Age: 50 Year
  Sex: Female
  Weight: 49 kg

DRUGS (9)
  1. PACLITAXEL [Suspect]
     Active Substance: PACLITAXEL
     Indication: Ovarian cancer
     Dosage: 269 MG
     Route: 042
     Dates: start: 20200715
  2. PACLITAXEL [Suspect]
     Active Substance: PACLITAXEL
     Dosage: 270 MG
     Route: 042
     Dates: start: 20200804
  3. CARBOPLATIN [Suspect]
     Active Substance: CARBOPLATIN
     Indication: Ovarian cancer
     Dosage: 489 MG
     Route: 042
     Dates: start: 20200715
  4. CARBOPLATIN [Suspect]
     Active Substance: CARBOPLATIN
     Dosage: 461 MG
     Route: 042
     Dates: start: 20200804
  5. PLACEBO [Suspect]
     Active Substance: PLACEBO
     Indication: Ovarian cancer
     Dosage: UNK
     Dates: start: 20200804
  6. CISPLATIN [Concomitant]
     Active Substance: CISPLATIN
     Indication: Ovarian cancer
     Dosage: UNK
  7. DOCETAXEL [Concomitant]
     Active Substance: DOCETAXEL
     Indication: Ovarian cancer
     Dosage: UNK
  8. PERFALGAN [Concomitant]
     Active Substance: ACETAMINOPHEN
     Indication: Abdominal pain upper
     Dosage: 500 MG, SINGLE
     Route: 048
     Dates: start: 20200806, end: 20200806
  9. ONDANSETRON [Concomitant]
     Active Substance: ONDANSETRON
     Indication: Abdominal pain upper
     Dosage: 4 MG, SINGLE
     Route: 048
     Dates: start: 20200806, end: 20200806

REACTIONS (1)
  - Small intestinal obstruction [Recovered/Resolved]

NARRATIVE: CASE EVENT DATE: 20200821
